FAERS Safety Report 20131251 (Version 1)
Quarter: 2021Q4

REPORT INFORMATION
  Report Type: Spontaneous
  Country: US (occurrence: US)
  Receive Date: 20211130
  Receipt Date: 20211130
  Transmission Date: 20220303
  Serious: Yes (Other)
  Sender: FDA-Public Use
  Company Number: US-BAYER-2021A255341

PATIENT
  Sex: Female

DRUGS (1)
  1. TINACTIN [Suspect]
     Active Substance: TOLNAFTATE
     Indication: Fungal skin infection
     Dosage: UNK
     Route: 061
     Dates: start: 202107

REACTIONS (2)
  - Cytogenetic abnormality [None]
  - Recalled product administered [None]

NARRATIVE: CASE EVENT DATE: 20210701
